FAERS Safety Report 17680743 (Version 1)
Quarter: 2020Q2

REPORT INFORMATION
  Report Type: Spontaneous
  Country: PT (occurrence: PT)
  Receive Date: 20200417
  Receipt Date: 20200417
  Transmission Date: 20200714
  Serious: Yes (Life-Threatening)
  Sender: FDA-Public Use
  Company Number: PT-MYLANLABS-2020M1038925

PATIENT
  Age: 60 Year
  Sex: Female

DRUGS (5)
  1. INSULIN ASPART [Concomitant]
     Active Substance: INSULIN ASPART
     Dosage: 30%
  2. DAPAGLIFLOZIN. [Suspect]
     Active Substance: DAPAGLIFLOZIN
     Indication: PRODUCT USED FOR UNKNOWN INDICATION
     Dosage: 5 MILLIGRAM, BID
     Route: 048
  3. PROTAMINE INSULIN ASPART [Concomitant]
     Active Substance: INSULIN ASPART
     Dosage: 16 + 24 + 24 UNITS/DAY
  4. METFORMIN [Suspect]
     Active Substance: METFORMIN HYDROCHLORIDE
     Indication: PRODUCT USED FOR UNKNOWN INDICATION
     Dosage: NON-AZ PRODUCT
  5. INSULIN [Concomitant]
     Active Substance: INSULIN NOS
     Dosage: UNK,

REACTIONS (1)
  - Diabetic ketoacidosis [Recovering/Resolving]
